FAERS Safety Report 16880833 (Version 4)
Quarter: 2019Q4

REPORT INFORMATION
  Report Type: Spontaneous
  Country: JP (occurrence: JP)
  Receive Date: 20191003
  Receipt Date: 20191105
  Transmission Date: 20200122
  Serious: Yes (Other)
  Sender: FDA-Public Use
  Company Number: JP-PFIZER INC-2019420442

PATIENT
  Age: 74 Year
  Sex: Male

DRUGS (6)
  1. VANCOMYCIN HCL [Suspect]
     Active Substance: VANCOMYCIN HYDROCHLORIDE
     Indication: OSTEOMYELITIS
  2. CEFTRIAXONE. [Concomitant]
     Active Substance: CEFTRIAXONE
     Indication: OTITIS EXTERNA
     Dosage: 2 G, DAILY
  3. MEROPENEM. [Suspect]
     Active Substance: MEROPENEM
     Indication: OTITIS EXTERNA
     Dosage: 1 G, 1X/DAY
  4. MEROPENEM. [Suspect]
     Active Substance: MEROPENEM
     Indication: OSTEOMYELITIS
  5. INSULIN [Concomitant]
     Active Substance: INSULIN NOS
     Indication: DIABETES MELLITUS
     Dosage: UNK
  6. VANCOMYCIN HCL [Suspect]
     Active Substance: VANCOMYCIN HYDROCHLORIDE
     Indication: OTITIS EXTERNA
     Dosage: 400 MG, 1X/DAY

REACTIONS (5)
  - Hepatic function abnormal [Unknown]
  - Malaise [Unknown]
  - Condition aggravated [Unknown]
  - Facial paralysis [Unknown]
  - Renal impairment [Unknown]
